FAERS Safety Report 6275130-2 (Version None)
Quarter: 2009Q3

REPORT INFORMATION
  Report Type: 
  Country: None (occurrence: None)
  Receive Date: 20090721
  Receipt Date: 20090709
  Transmission Date: 20100115
  Serious: Yes (Other)
  Sender: FDA-Public Use
  Company Number: US-JNJFOC-20090703278

PATIENT
  Age: 34 Year
  Sex: Male

DRUGS (3)
  1. INFLIXIMAB [Suspect]
     Indication: SCLERITIS
     Dosage: WEEKS 0, 2, 6, THEN EVERY 4 WEEKS; TOTAL OF 8 INFUSIONS ADMINISTERED
     Route: 042
  2. PREDNISONE TAB [Concomitant]
  3. METHOTREXATE [Concomitant]

REACTIONS (2)
  - CHORIORETINITIS [None]
  - DRUG INEFFECTIVE FOR UNAPPROVED INDICATION [None]
